FAERS Safety Report 9633037 (Version 3)
Quarter: 2014Q1

REPORT INFORMATION
  Report Type: Spontaneous
  Country: BR (occurrence: BR)
  Receive Date: 20131018
  Receipt Date: 20140225
  Transmission Date: 20141002
  Serious: Yes (Other)
  Sender: FDA-Public Use
  Company Number: BR-ABBVIE-13P-020-1157835-00

PATIENT
  Age: 58 Year
  Sex: Female
  Weight: 75 kg

DRUGS (6)
  1. HUMIRA [Suspect]
     Indication: ANKYLOSING SPONDYLITIS
     Route: 058
  2. CITALOPRAM [Suspect]
     Indication: ANXIETY
     Dates: start: 201304, end: 201307
  3. CITALOPRAM [Suspect]
     Indication: DEPRESSION
  4. ALPRAZOLAM [Suspect]
     Indication: DEPRESSION
     Dosage: DOSAGE DECREASED
     Dates: start: 201304
  5. TRAMADOL [Concomitant]
     Indication: PAIN
     Dates: start: 2011
  6. OMEPRAZOL [Concomitant]
     Indication: PAIN
     Dates: start: 2008

REACTIONS (16)
  - Aptyalism [Recovering/Resolving]
  - Lacrimation decreased [Recovering/Resolving]
  - Dry eye [Recovering/Resolving]
  - Pneumonia [Recovered/Resolved]
  - Thyroid neoplasm [Unknown]
  - Renal cyst [Unknown]
  - Spleen disorder [Not Recovered/Not Resolved]
  - Breast mass [Recovered/Resolved]
  - Vitamin D deficiency [Recovering/Resolving]
  - Weight decreased [Recovered/Resolved]
  - Immunodeficiency [Unknown]
  - Memory impairment [Recovered/Resolved]
  - Panic disorder [Not Recovered/Not Resolved]
  - Pain [Not Recovered/Not Resolved]
  - Renal cyst [Not Recovered/Not Resolved]
  - Confusional state [Unknown]
